FAERS Safety Report 9626522 (Version 2)
Quarter: 2014Q1

REPORT INFORMATION
  Report Type: Spontaneous
  Country: BR (occurrence: BR)
  Receive Date: 20131016
  Receipt Date: 20140122
  Transmission Date: 20141002
  Serious: Yes (Other)
  Sender: FDA-Public Use
  Company Number: BR-ABBVIE-13P-020-1158489-00

PATIENT
  Sex: Female

DRUGS (2)
  1. DEPAKENE [Suspect]
     Indication: PRODUCT USED FOR UNKNOWN INDICATION
  2. DEPAKENE [Suspect]

REACTIONS (6)
  - Petit mal epilepsy [Recovering/Resolving]
  - Migraine [Recovering/Resolving]
  - Activities of daily living impaired [Unknown]
  - Drug ineffective [Unknown]
  - Amnesia [Unknown]
  - Headache [Unknown]
